FAERS Safety Report 25668241 (Version 2)
Quarter: 2025Q3

REPORT INFORMATION
  Report Type: Spontaneous
  Country: EU (occurrence: EU)
  Receive Date: 20250812
  Receipt Date: 20250909
  Transmission Date: 20251021
  Serious: Yes (Death, Other)
  Sender: CELLTRION
  Company Number: EU-ROCHE-10000302272

PATIENT

DRUGS (1)
  1. RITUXIMAB [Suspect]
     Active Substance: RITUXIMAB
     Indication: Alveolar proteinosis
     Dates: start: 202106

REACTIONS (6)
  - Multiple organ dysfunction syndrome [Fatal]
  - Pneumonia klebsiella [Fatal]
  - Septic shock [Fatal]
  - Pneumonia [Fatal]
  - COVID-19 [Unknown]
  - Intentional product use issue [Unknown]
